FAERS Safety Report 18521685 (Version 1)
Quarter: 2020Q4

REPORT INFORMATION
  Report Type: Spontaneous
  Country: US (occurrence: US)
  Receive Date: 20201118
  Receipt Date: 20201118
  Transmission Date: 20210114
  Serious: Yes (Life-Threatening)
  Sender: FDA-Public Use
  Company Number: None

PATIENT
  Age: 40 Year
  Sex: Female

DRUGS (3)
  1. FERAHEME [Suspect]
     Active Substance: FERUMOXYTOL NON-STOICHIOMETRIC MAGNETITE
     Indication: ANAEMIA
     Dates: start: 20201118, end: 20201118
  2. CHLORTHALIDONE. [Concomitant]
     Active Substance: CHLORTHALIDONE
  3. PRENATAL VITAMIN [Concomitant]
     Active Substance: VITAMINS

REACTIONS (3)
  - Chest pain [None]
  - Back pain [None]
  - Anaphylactic shock [None]

NARRATIVE: CASE EVENT DATE: 20201118
